FAERS Safety Report 5004015-4 (Version None)
Quarter: 2006Q2

REPORT INFORMATION
  Report Type: 
  Country: None (occurrence: None)
  Receive Date: 20060517
  Receipt Date: 20060502
  Transmission Date: 20061013
  Serious: Yes (Other)
  Sender: FDA-Public Use
  Company Number: PHBS2006BE06585

PATIENT
  Age: 70 Year
  Sex: Male

DRUGS (4)
  1. ZOMETA [Suspect]
     Indication: OSTEOPOROSIS
     Route: 065
  2. CHEMOTHERAPEUTICS,OTHER [Concomitant]
     Route: 065
  3. CYCLOPHOSPHAMIDE + ADRIAMYCIN + PREDNISOLONE [Concomitant]
     Route: 065
  4. VINCRISTINE [Concomitant]
     Route: 065

REACTIONS (1)
  - OSTEONECROSIS [None]
